FAERS Safety Report 23116144 (Version 1)
Quarter: 2023Q4

REPORT INFORMATION
  Report Type: Spontaneous
  Country: GB (occurrence: GB)
  Receive Date: 20231027
  Receipt Date: 20231027
  Transmission Date: 20240109
  Serious: Yes (Other)
  Sender: FDA-Public Use
  Company Number: GB-SA-SAC20231023000455

PATIENT
  Age: 54 Year
  Sex: Female

DRUGS (1)
  1. KEVZARA [Suspect]
     Active Substance: SARILUMAB
     Indication: Rheumatoid arthritis
     Dosage: 200 MG
     Route: 058
     Dates: start: 202111

REACTIONS (6)
  - Rheumatoid arthritis [Unknown]
  - Pain [Unknown]
  - Discomfort [Unknown]
  - Joint swelling [Unknown]
  - Peripheral swelling [Unknown]
  - Stress [Unknown]
